FAERS Safety Report 7505605-7 (Version None)
Quarter: 2011Q2

REPORT INFORMATION
  Report Type: 
  Country: None (occurrence: None)
  Receive Date: 20110526
  Receipt Date: 20110520
  Transmission Date: 20111010
  Serious: Yes (Other)
  Sender: FDA-Public Use
  Company Number: IE-PFIZER INC-2011039042

PATIENT
  Age: 39 Year
  Sex: Female
  Weight: 70 kg

DRUGS (3)
  1. LYRICA [Suspect]
     Indication: PAIN
     Dosage: 25 MG, ONCE DAILY IN THE MORNING AND THREE TIMES DAILY AT NIGHT
     Dates: start: 20101116, end: 20101126
  2. PARACETAMOL [Concomitant]
     Dosage: UNK
  3. ZOPICLONE [Concomitant]
     Indication: INSOMNIA
     Dosage: 7.5 MG, ONCE AT NIGHT
     Route: 048

REACTIONS (4)
  - INDIFFERENCE [None]
  - SELF-INJURIOUS IDEATION [None]
  - DEPERSONALISATION [None]
  - HOSTILITY [None]
